FAERS Safety Report 15976219 (Version 1)
Quarter: 2019Q1

REPORT INFORMATION
  Report Type: Spontaneous
  Country: US (occurrence: US)
  Receive Date: 20190218
  Receipt Date: 20190218
  Transmission Date: 20190418
  Serious: No
  Sender: FDA-Public Use
  Company Number: US-PFIZER INC-2019071068

PATIENT
  Age: 1 Year
  Sex: Female

DRUGS (1)
  1. GENOTROPIN [Suspect]
     Active Substance: SOMATROPIN
     Dosage: 0.7 MG, DAILY
     Dates: start: 20170306

REACTIONS (8)
  - Blood alkaline phosphatase increased [Unknown]
  - White blood cell count increased [Unknown]
  - Blood glucose increased [Unknown]
  - Cortisol decreased [Unknown]
  - Blood thyroid stimulating hormone decreased [Unknown]
  - Blood albumin increased [Unknown]
  - Aspartate aminotransferase increased [Unknown]
  - Carbon dioxide decreased [Unknown]

NARRATIVE: CASE EVENT DATE: 20170324
